FAERS Safety Report 7019602-1 (Version None)
Quarter: 2010Q3

REPORT INFORMATION
  Report Type: 
  Country: None (occurrence: None)
  Receive Date: 20100928
  Receipt Date: 20100928
  Transmission Date: 20110219
  Serious: Yes (Hospitalization)
  Sender: FDA-Public Use
  Company Number: None

PATIENT
  Age: 50 Year
  Sex: Male
  Weight: 50.8029 kg

DRUGS (1)
  1. SIMVASTATIN [Suspect]
     Indication: HYPERLIPIDAEMIA
     Dosage: 40MG HS PO
     Route: 048
     Dates: start: 20100329

REACTIONS (5)
  - ABNORMAL BEHAVIOUR [None]
  - INJURY [None]
  - MUSCLE SPASMS [None]
  - RENAL FAILURE ACUTE [None]
  - RHABDOMYOLYSIS [None]
